FAERS Safety Report 24804999 (Version 2)
Quarter: 2025Q3

REPORT INFORMATION
  Report Type: Report from Study
  Country: VN (occurrence: VN)
  Receive Date: 20250103
  Receipt Date: 20250803
  Transmission Date: 20251021
  Serious: Yes (Hospitalization)
  Sender: ALEXION PHARMACEUTICALS
  Company Number: VN-AstraZeneca-CH-00776375A

PATIENT
  Sex: Male

DRUGS (1)
  1. ACALABRUTINIB [Suspect]
     Active Substance: ACALABRUTINIB
     Indication: B-cell type acute leukaemia
     Dosage: 200 MILLIGRAM, QD

REACTIONS (4)
  - Headache [Unknown]
  - Red blood cell count decreased [Unknown]
  - Epistaxis [Unknown]
  - Pyrexia [Unknown]
